FAERS Safety Report 8049877-1 (Version None)
Quarter: 2012Q1

REPORT INFORMATION
  Report Type: 
  Country: None (occurrence: None)
  Receive Date: 20120117
  Receipt Date: 20120112
  Transmission Date: 20120608
  Serious: No
  Sender: FDA-Public Use
  Company Number: US-TEVA-317497USA

PATIENT
  Sex: Female
  Weight: 56.75 kg

DRUGS (3)
  1. PLAN B ONE-STEP [Suspect]
     Indication: POST COITAL CONTRACEPTION
     Dosage: 1.5 MILLIGRAM;
     Route: 048
     Dates: start: 20111231, end: 20111231
  2. ZITHROMAX [Concomitant]
     Indication: BRONCHITIS
  3. NUVARING [Concomitant]
     Indication: CONTRACEPTION

REACTIONS (6)
  - BREAST DISCOLOURATION [None]
  - ABDOMINAL DISTENSION [None]
  - BREAST PAIN [None]
  - WEIGHT INCREASED [None]
  - PELVIC PAIN [None]
  - OEDEMA PERIPHERAL [None]
